FAERS Safety Report 22595533 (Version 1)
Quarter: 2023Q2

REPORT INFORMATION
  Report Type: Spontaneous
  Country: GB (occurrence: GB)
  Receive Date: 20230613
  Receipt Date: 20230613
  Transmission Date: 20230721
  Serious: Yes (Hospitalization)
  Sender: FDA-Public Use
  Company Number: None

PATIENT
  Sex: Male

DRUGS (10)
  1. DONEPEZIL [Suspect]
     Active Substance: DONEPEZIL
     Indication: Product used for unknown indication
     Dosage: UNK
     Route: 065
     Dates: start: 20221207
  2. BISACODYL [Concomitant]
     Active Substance: BISACODYL
     Dosage: TO BE TAKEN AT NIGHT 56 TABLET
     Route: 065
     Dates: start: 20220914
  3. CAFFEINE [Concomitant]
     Active Substance: CAFFEINE
     Dosage: CONTAINING DRINKS OR OTHER MEDICATION 28 TABLET
     Route: 065
  4. FUROSEMIDE [Concomitant]
     Active Substance: FUROSEMIDE
     Dosage: 1 DOSAGE FORM, QD (ONE TO BE TAKEN EACH MORNING 28 TABLET)
     Route: 065
     Dates: start: 20220928
  5. FUROSEMIDE [Concomitant]
     Active Substance: FUROSEMIDE
     Dosage: 1 DOSAGE FORM, QD (ONE TO BE TAKEN EACH MORNING 28 TABLET)
     Route: 065
     Dates: start: 20221031
  6. GLYCOPYRRONIUM [Concomitant]
     Active Substance: GLYCOPYRRONIUM
     Indication: Salivary hypersecretion
     Dosage: 1.25 TO 2.5ML TO BE GIVEN THREE TIMES EACH DAY FOR HYPERSALIVATION AS NEEDED 60 ML)
     Route: 048
     Dates: start: 20221004
  7. LEVOTHYROXINE SODIUM [Concomitant]
     Active Substance: LEVOTHYROXINE SODIUM
     Dosage: 1 DOSAGE FORM, QD (ONE TO BE TAKEN EACH MORNING)
     Route: 065
     Dates: start: 20221128
  8. MEMANTINE [Concomitant]
     Active Substance: MEMANTINE
     Dosage: UNK
     Route: 065
  9. PERINDOPRIL ERBUMINE [Concomitant]
     Active Substance: PERINDOPRIL ERBUMINE
     Dosage: 1 DOSAGE FORM, QD (ONE TO BE TAKEN EACH MORNING)
     Route: 065
     Dates: start: 20221114
  10. LEVOTHYROXINE SODIUM [Concomitant]
     Active Substance: LEVOTHYROXINE SODIUM
     Dosage: 1 DOSAGE FORM, QD, ONE TO BE TAKEN EACH MORNING
     Route: 065

REACTIONS (1)
  - Musculoskeletal stiffness [Recovered/Resolved]
